FAERS Safety Report 21983941 (Version 1)
Quarter: 2023Q1

REPORT INFORMATION
  Report Type: Spontaneous
  Country: BE (occurrence: BE)
  Receive Date: 20230213
  Receipt Date: 20230213
  Transmission Date: 20230417
  Serious: Yes (Hospitalization, Other)
  Sender: FDA-Public Use
  Company Number: BE-STADA-268430

PATIENT
  Age: 70 Year
  Sex: Female

DRUGS (6)
  1. OXALIPLATIN [Suspect]
     Active Substance: OXALIPLATIN
     Indication: Pancreatic neuroendocrine tumour metastatic
     Dosage: UNK (FOLFOX REGIMEN)
     Route: 065
     Dates: start: 2020
  2. FLUOROURACIL [Suspect]
     Active Substance: FLUOROURACIL
     Indication: Pancreatic neuroendocrine tumour metastatic
     Dosage: UNK (FOLFOX REGIMEN)
     Route: 065
     Dates: start: 2020
  3. SUNITINIB [Suspect]
     Active Substance: SUNITINIB
     Indication: Pancreatic neuroendocrine tumour metastatic
     Dosage: UNK
     Route: 065
     Dates: start: 2020
  4. LEUCOVORIN [Suspect]
     Active Substance: LEUCOVORIN
     Indication: Pancreatic neuroendocrine tumour metastatic
     Dosage: UNK (FOLFOX REGIMEN)
     Route: 065
     Dates: start: 2020
  5. TEMOZOLOMIDE [Concomitant]
     Active Substance: TEMOZOLOMIDE
     Indication: Pancreatic neuroendocrine tumour metastatic
     Dosage: UNK
     Route: 065
     Dates: start: 2020
  6. CAPECITABINE [Concomitant]
     Active Substance: CAPECITABINE
     Indication: Pancreatic neuroendocrine tumour metastatic
     Dosage: UNK
     Route: 065
     Dates: start: 2020

REACTIONS (6)
  - Acute kidney injury [Recovered/Resolved]
  - Altered state of consciousness [Recovering/Resolving]
  - Coagulopathy [Unknown]
  - Heat stroke [Recovering/Resolving]
  - Hypoxia [Recovered/Resolved]
  - Drug ineffective [Unknown]

NARRATIVE: CASE EVENT DATE: 20200101
